FAERS Safety Report 10166709 (Version 1)
Quarter: 2014Q2

REPORT INFORMATION
  Report Type: Report from Study
  Country: CA (occurrence: CA)
  Receive Date: 20140512
  Receipt Date: 20140512
  Transmission Date: 20141212
  Serious: Yes (Other)
  Sender: FDA-Public Use
  Company Number: CA-US-EMD SERONO, INC.-7291144

PATIENT
  Sex: Male
  Weight: 3.37 kg

DRUGS (1)
  1. REBIF [Suspect]
     Indication: MULTIPLE SCLEROSIS
     Route: 064

REACTIONS (3)
  - Foetal distress syndrome [Recovered/Resolved]
  - Live birth [Recovered/Resolved]
  - Foetal exposure during pregnancy [Recovered/Resolved]
